FAERS Safety Report 19149788 (Version 1)
Quarter: 2021Q2

REPORT INFORMATION
  Report Type: Report from Study
  Country: None (occurrence: US)
  Receive Date: 20210416
  Receipt Date: 20210416
  Transmission Date: 20210717
  Serious: Yes (Hospitalization)
  Sender: FDA-Public Use
  Company Number: US-ABBVIE-21K-163-3848792-00

PATIENT
  Age: 67 Year
  Sex: Female
  Weight: 72 kg

DRUGS (22)
  1. HUMIRA [Suspect]
     Active Substance: ADALIMUMAB
     Route: 058
     Dates: start: 202104
  2. PANTOPRAZOLE [Concomitant]
     Active Substance: PANTOPRAZOLE
     Indication: OESOPHAGEAL DISORDER
  3. CHOLESTYRAMINE. [Concomitant]
     Active Substance: CHOLESTYRAMINE
     Indication: CROHN^S DISEASE
  4. VIBERZI [Concomitant]
     Active Substance: ELUXADOLINE
     Indication: DIARRHOEA
  5. NASACORT [Concomitant]
     Active Substance: TRIAMCINOLONE ACETONIDE
     Indication: EYE DISORDER
  6. LIDOCAINE + FLUORESCEIN MINIMS [Concomitant]
     Indication: PAIN
     Dosage: PATCH
  7. DIPHENOXYLATE/ATROPINE [Concomitant]
     Active Substance: ATROPINE\DIPHENOXYLATE
     Indication: CROHN^S DISEASE
  8. CARISOPRODOL. [Concomitant]
     Active Substance: CARISOPRODOL
     Indication: SURGERY
  9. CYMBALTA [Concomitant]
     Active Substance: DULOXETINE HYDROCHLORIDE
     Indication: ANTIDEPRESSANT THERAPY
  10. DICYCLOMINE [DICYCLOVERINE HYDROCHLORIDE] [Concomitant]
     Active Substance: DICYCLOMINE HYDROCHLORIDE
     Indication: CROHN^S DISEASE
  11. LOTEMAX SM GEL [Concomitant]
     Indication: EYE DISORDER
  12. CIPROFLOXACIN. [Concomitant]
     Active Substance: CIPROFLOXACIN
     Indication: DIARRHOEA
  13. HUMIRA [Suspect]
     Active Substance: ADALIMUMAB
     Indication: CROHN^S DISEASE
     Route: 058
     Dates: start: 202011, end: 202101
  14. OXYCODONE [Concomitant]
     Active Substance: OXYCODONE
     Indication: SURGERY
  15. PREGABALIN. [Concomitant]
     Active Substance: PREGABALIN
     Indication: NEUROPATHY PERIPHERAL
  16. DICLOFENAC PATCH [Concomitant]
     Indication: ARTHRITIS
  17. CIMETIDINE [Concomitant]
     Active Substance: CIMETIDINE
     Indication: OESOPHAGEAL DISORDER
  18. XIIDRA [Concomitant]
     Active Substance: LIFITEGRAST
     Indication: EYE DISORDER
  19. COVID?19 VACCINE NOS. [Concomitant]
     Active Substance: COVID-19 VACCINE NOS
     Indication: COVID-19 IMMUNISATION
     Dosage: PFIZER
     Route: 030
     Dates: start: 20210226, end: 20210226
  20. COVID?19 VACCINE NOS. [Concomitant]
     Active Substance: COVID-19 VACCINE NOS
     Dosage: PFIZER
     Route: 030
     Dates: start: 20210319, end: 20210319
  21. NYSTATIN. [Concomitant]
     Active Substance: NYSTATIN
     Indication: PAIN
  22. PREDNISONE. [Concomitant]
     Active Substance: PREDNISONE
     Indication: ENTERITIS

REACTIONS (13)
  - Weight decreased [Recovering/Resolving]
  - Limb injury [Recovering/Resolving]
  - Incorrect dose administered [Unknown]
  - Arthralgia [Recovering/Resolving]
  - Pain in extremity [Recovering/Resolving]
  - Tremor [Not Recovered/Not Resolved]
  - Intervertebral disc disorder [Recovering/Resolving]
  - Osteoarthritis [Recovering/Resolving]
  - Neck injury [Recovering/Resolving]
  - Back pain [Recovering/Resolving]
  - Diarrhoea [Not Recovered/Not Resolved]
  - Fall [Recovering/Resolving]
  - Head injury [Recovering/Resolving]

NARRATIVE: CASE EVENT DATE: 202103
